FAERS Safety Report 5706756-X (Version None)
Quarter: 2008Q2

REPORT INFORMATION
  Report Type: 
  Country: None (occurrence: None)
  Receive Date: 20080415
  Receipt Date: 20080415
  Transmission Date: 20081010
  Serious: Yes (Other)
  Sender: FDA-Public Use
  Company Number: None

PATIENT
  Sex: Female
  Weight: 59.4212 kg

DRUGS (2)
  1. SINGULAIR [Suspect]
     Indication: ASTHMA
     Dosage: 1 TABLET 1 ONCE A DAY PO
     Route: 048
     Dates: start: 19980101, end: 20080409
  2. SINGULAIR [Suspect]
     Indication: HYPERSENSITIVITY
     Dosage: 1 TABLET 1 ONCE A DAY PO
     Route: 048
     Dates: start: 19980101, end: 20080409

REACTIONS (4)
  - DEPRESSION [None]
  - FATIGUE [None]
  - MOOD ALTERED [None]
  - PALPITATIONS [None]
